FAERS Safety Report 10826140 (Version 1)
Quarter: 2015Q1

REPORT INFORMATION
  Report Type: Spontaneous
  Country: CZ (occurrence: None)
  Receive Date: 20150213
  Receipt Date: 20150213
  Transmission Date: 20150721
  Serious: Yes (Hospitalization)
  Sender: FDA-Public Use
  Company Number: 2013BI097506

PATIENT
  Age: 32 Year
  Sex: Male

DRUGS (2)
  1. FRAXIPARIN [Concomitant]
     Active Substance: NADROPARIN CALCIUM
  2. TYSABRI [Suspect]
     Active Substance: NATALIZUMAB
     Dates: start: 20110701

REACTIONS (2)
  - Acetabulum fracture [None]
  - Fall [None]

NARRATIVE: CASE EVENT DATE: 20130514
